FAERS Safety Report 18885821 (Version 1)
Quarter: 2021Q1

REPORT INFORMATION
  Report Type: Spontaneous
  Country: US (occurrence: US)
  Receive Date: 20210211
  Receipt Date: 20210211
  Transmission Date: 20210420
  Serious: Yes (Life-Threatening)
  Sender: FDA-Public Use
  Company Number: None

PATIENT
  Age: 72 Year
  Sex: Male
  Weight: 65.32 kg

DRUGS (1)
  1. CLOPIDOGREL (CLOPIDOGREL BISULFATE 75MG TAB) [Suspect]
     Active Substance: CLOPIDOGREL BISULFATE
     Indication: PULMONARY EMBOLISM
     Route: 048
     Dates: start: 20201120, end: 20201222

REACTIONS (2)
  - Treatment failure [None]
  - Pulmonary embolism [None]

NARRATIVE: CASE EVENT DATE: 20201222
